FAERS Safety Report 15560779 (Version 1)
Quarter: 2018Q4

REPORT INFORMATION
  Report Type: Spontaneous
  Country: US (occurrence: US)
  Receive Date: 20181023
  Receipt Date: 20181023
  Transmission Date: 20190205
  Serious: Yes (Hospitalization)
  Sender: FDA-Public Use
  Company Number: None

PATIENT
  Age: 79 Year
  Sex: Female
  Weight: 96.8 kg

DRUGS (25)
  1. APAP [Concomitant]
     Active Substance: ACETAMINOPHEN
  2. ACIDOPHILUS [Concomitant]
     Active Substance: LACTOBACILLUS ACIDOPHILUS
  3. MIRALAX [Concomitant]
     Active Substance: POLYETHYLENE GLYCOL 3350
  4. LYRICA [Concomitant]
     Active Substance: PREGABALIN
  5. VOLTAREN [Concomitant]
     Active Substance: DICLOFENAC SODIUM
  6. ALBUTEROL. [Concomitant]
     Active Substance: ALBUTEROL
  7. ACCUNEB [Concomitant]
     Active Substance: ALBUTEROL SULFATE
  8. PROBIOTIC [Concomitant]
     Active Substance: PROBIOTICS NOS
  9. NYSTATIN. [Concomitant]
     Active Substance: NYSTATIN
  10. ZANTAC [Concomitant]
     Active Substance: RANITIDINE HYDROCHLORIDE
  11. PRADAXA [Concomitant]
     Active Substance: DABIGATRAN ETEXILATE MESYLATE
  12. ZOLOFT [Concomitant]
     Active Substance: SERTRALINE HYDROCHLORIDE
  13. FE [Concomitant]
     Active Substance: IRON
  14. LASIX [Concomitant]
     Active Substance: FUROSEMIDE
  15. FOLVITE [Concomitant]
     Active Substance: FOLIC ACID
  16. MUCINEX [Concomitant]
     Active Substance: GUAIFENESIN
  17. FENTANYL. [Suspect]
     Active Substance: FENTANYL
     Indication: SEDATION
     Dosage: ?          OTHER DOSE:150 UG, OTO;?
     Route: 042
  18. CYTOMEL [Concomitant]
     Active Substance: LIOTHYRONINE SODIUM
  19. FLONASE [Concomitant]
     Active Substance: FLUTICASONE PROPIONATE
  20. ZOFRAN [Concomitant]
     Active Substance: ONDANSETRON HYDROCHLORIDE
  21. PERCOCET [Suspect]
     Active Substance: ACETAMINOPHEN\OXYCODONE HYDROCHLORIDE
     Indication: PROCEDURAL PAIN
     Dosage: ?          OTHER STRENGTH:5.325 Q6HRS PRN;OTHER DOSE:5.325;?
     Route: 048
  22. LEVOTHYROXINE. [Concomitant]
     Active Substance: LEVOTHYROXINE
  23. PACERONE [Concomitant]
     Active Substance: AMIODARONE HYDROCHLORIDE
  24. DESYM [Concomitant]
  25. RECLAST [Concomitant]
     Active Substance: ZOLEDRONIC ACID

REACTIONS (2)
  - Acute respiratory failure [None]
  - Pneumonia aspiration [None]

NARRATIVE: CASE EVENT DATE: 20180909
